FAERS Safety Report 8026450-2 (Version None)
Quarter: 2012Q1

REPORT INFORMATION
  Report Type: 
  Country: None (occurrence: None)
  Receive Date: 20120105
  Receipt Date: 20111228
  Transmission Date: 20120608
  Serious: Yes (Other)
  Sender: FDA-Public Use
  Company Number: US-ASTRAZENECA-2011SE78691

PATIENT
  Sex: Female

DRUGS (5)
  1. CLONIPINE [Concomitant]
  2. LAMICTAL [Concomitant]
  3. SEROQUEL [Suspect]
     Indication: BIPOLAR DISORDER
     Route: 048
  4. TRAZIDONE [Concomitant]
  5. OXYCODONE HCL [Concomitant]

REACTIONS (2)
  - LOWER LIMB FRACTURE [None]
  - DRUG DOSE OMISSION [None]
